FAERS Safety Report 4692481-3 (Version None)
Quarter: 2005Q2

REPORT INFORMATION
  Report Type: 
  Country: None (occurrence: None)
  Receive Date: 20050613
  Receipt Date: 20050428
  Transmission Date: 20051028
  Serious: No
  Sender: FDA-Public Use
  Company Number: 2005-00923

PATIENT
  Age: 72 Year
  Sex: Male
  Weight: 82.1 kg

DRUGS (5)
  1. VELCADE [Suspect]
     Indication: MULTIPLE MYELOMA
     Dosage: 2/WEEK
     Dates: start: 20050329, end: 20050408
  2. DIOVAN [Concomitant]
  3. WARFARIN SODIUM [Concomitant]
  4. TRICOR [Concomitant]
  5. GLUCOTROL [Concomitant]

REACTIONS (1)
  - ABDOMINAL DISTENSION [None]
